FAERS Safety Report 21144941 (Version 1)
Quarter: 2022Q3

REPORT INFORMATION
  Report Type: Spontaneous
  Country: US (occurrence: US)
  Receive Date: 20220728
  Receipt Date: 20220728
  Transmission Date: 20221026
  Serious: Yes (Death, Life-Threatening, Hospitalization, Other)
  Sender: FDA-Public Use
  Company Number: US-BRISTOL-MYERS SQUIBB COMPANY-2022-074885

PATIENT
  Age: 71 Year
  Sex: Male

DRUGS (1)
  1. REVLIMID [Suspect]
     Active Substance: LENALIDOMIDE
     Indication: Plasma cell myeloma
     Dosage: DOSE : UNAVAILABLE;     FREQ : ^SOME CYCLE^ WHICH THEY FOLLOWED
     Route: 065
     Dates: start: 201912, end: 202105

REACTIONS (3)
  - Cardiac disorder [Fatal]
  - Cryptococcosis [Fatal]
  - Plasma cell myeloma [Fatal]
